FAERS Safety Report 13473726 (Version 2)
Quarter: 2017Q2

REPORT INFORMATION
  Report Type: Report from Study
  Country: US (occurrence: US)
  Receive Date: 20170424
  Receipt Date: 20170502
  Transmission Date: 20170830
  Serious: Yes (Other)
  Sender: FDA-Public Use
  Company Number: US-TAKEDA-2017TUS008163

PATIENT
  Age: 36 Year
  Sex: Female
  Weight: 82.99 kg

DRUGS (7)
  1. LIALDA [Concomitant]
     Active Substance: MESALAMINE
     Dosage: 1.2 G, UNK
  2. BENTYL [Concomitant]
     Active Substance: DICYCLOMINE HYDROCHLORIDE
     Dosage: 10 MG, UNK
  3. MESALAMINE. [Concomitant]
     Active Substance: MESALAMINE
     Dosage: 4 G, UNK
     Route: 054
  4. PREDNISONE. [Concomitant]
     Active Substance: PREDNISONE
     Dosage: UNK
  5. TYLENOL EXTRA STRENGTH [Concomitant]
     Active Substance: ACETAMINOPHEN
     Dosage: 500 MG, UNK
  6. PROTONIX                           /00661201/ [Concomitant]
     Active Substance: OMEPRAZOLE
     Dosage: 40 MG, UNK
  7. VEDOLIZUMAB [Suspect]
     Active Substance: VEDOLIZUMAB
     Indication: COLITIS ULCERATIVE
     Dosage: 300 MG, UNK
     Route: 042
     Dates: start: 20161220, end: 20161220

REACTIONS (1)
  - Colon operation [Unknown]

NARRATIVE: CASE EVENT DATE: 201702
